FAERS Safety Report 8114759-3 (Version None)
Quarter: 2012Q1

REPORT INFORMATION
  Report Type: 
  Country: None (occurrence: None)
  Receive Date: 20120202
  Receipt Date: 20120202
  Transmission Date: 20120608
  Serious: Yes (Life-Threatening)
  Sender: FDA-Public Use
  Company Number: None

PATIENT

DRUGS (2)
  1. PRADAXA [Suspect]
     Dosage: 150MG BID 047
  2. WARFARIN SODIUM [Suspect]
     Dosage: 5MG QD 047
     Dates: start: 20110603

REACTIONS (12)
  - HYPERKALAEMIA [None]
  - RESPIRATORY DISTRESS [None]
  - DOCUMENTED HYPERSENSITIVITY TO ADMINISTERED DRUG [None]
  - HYPERCOAGULATION [None]
  - NODAL ARRHYTHMIA [None]
  - CHEST DISCOMFORT [None]
  - TOXICITY TO VARIOUS AGENTS [None]
  - TACHYCARDIA [None]
  - URTICARIA [None]
  - CHEST PAIN [None]
  - RENAL FAILURE ACUTE [None]
  - OXYGEN SATURATION DECREASED [None]
